FAERS Safety Report 17778041 (Version 7)
Quarter: 2020Q4

REPORT INFORMATION
  Report Type: Spontaneous
  Country: CA (occurrence: CA)
  Receive Date: 20200513
  Receipt Date: 20201116
  Transmission Date: 20210113
  Serious: Yes (Other)
  Sender: FDA-Public Use
  Company Number: CA-PFIZER INC-2019535205

PATIENT
  Age: 84 Year
  Sex: Female

DRUGS (4)
  1. XELJANZ XR [Suspect]
     Active Substance: TOFACITINIB CITRATE
     Dosage: 11 MG, ONCE A DAY OR 5 MG BID (TWICE A DAY)
     Route: 048
     Dates: start: 2020, end: 2020
  2. XELJANZ XR [Suspect]
     Active Substance: TOFACITINIB CITRATE
     Dosage: 11 MG, ONCE A DAY
     Route: 048
     Dates: start: 2020
  3. XELJANZ XR [Suspect]
     Active Substance: TOFACITINIB CITRATE
     Indication: RHEUMATOID ARTHRITIS
     Dosage: 11 MG, ONCE A DAY OR 5 MG BID (TWICE A DAY)
     Route: 048
     Dates: start: 2020, end: 2020
  4. CORTISONE [Concomitant]
     Active Substance: CORTISONE
     Indication: RHEUMATOID ARTHRITIS
     Dosage: THREE TIMES
     Route: 065

REACTIONS (14)
  - Skin haemorrhage [Unknown]
  - Eye disorder [Not Recovered/Not Resolved]
  - Cardiac disorder [Unknown]
  - Gastric disorder [Recovered/Resolved]
  - Visual brightness [Unknown]
  - Rib fracture [Unknown]
  - Alopecia [Unknown]
  - Exposure to communicable disease [Unknown]
  - Blood pressure increased [Unknown]
  - Skin burning sensation [Unknown]
  - Fall [Unknown]
  - Syncope [Unknown]
  - Pruritus [Unknown]
  - Visual impairment [Unknown]

NARRATIVE: CASE EVENT DATE: 20200730
